FAERS Safety Report 5859019-6 (Version None)
Quarter: 2008Q3

REPORT INFORMATION
  Report Type: 
  Country: None (occurrence: None)
  Receive Date: 20080827
  Receipt Date: 20080814
  Transmission Date: 20090109
  Serious: Yes (Other)
  Sender: FDA-Public Use
  Company Number: TR-RANBAXY-2008RR-17387

PATIENT

DRUGS (2)
  1. IBUPROFEN TABLETS [Suspect]
     Dosage: 10 MG/KG, UNK
     Route: 048
  2. IBUPROFEN TABLETS [Suspect]
     Dosage: 5 MG/KG, BID

REACTIONS (1)
  - RENAL FAILURE ACUTE [None]
